FAERS Safety Report 18674792 (Version 10)
Quarter: 2022Q1

REPORT INFORMATION
  Report Type: Spontaneous
  Country: PL (occurrence: PL)
  Receive Date: 20201228
  Receipt Date: 20220316
  Transmission Date: 20220423
  Serious: Yes (Hospitalization, Other)
  Sender: FDA-Public Use
  Company Number: PL-AUROBINDO-AUR-APL-2020-063198

PATIENT
  Age: 42 Year
  Sex: Male

DRUGS (47)
  1. GABAPENTIN [Suspect]
     Active Substance: GABAPENTIN
     Indication: Pain
     Dosage: 300 MILLIGRAM, 3 TIMES A DAY
     Route: 065
  2. GABAPENTIN [Suspect]
     Active Substance: GABAPENTIN
     Indication: Arthralgia
     Dosage: 300 MILLIGRAM, FOUR TIMES/DAY
     Route: 065
  3. GABAPENTIN [Suspect]
     Active Substance: GABAPENTIN
     Indication: Pain
  4. GABAPENTIN [Suspect]
     Active Substance: GABAPENTIN
     Indication: Oesophageal pain
  5. ACETAMINOPHEN [Suspect]
     Active Substance: ACETAMINOPHEN
     Indication: Pain
     Dosage: UNK
     Route: 065
  6. ACETAMINOPHEN [Suspect]
     Active Substance: ACETAMINOPHEN
     Indication: Analgesic therapy
  7. ACETAMINOPHEN [Suspect]
     Active Substance: ACETAMINOPHEN
     Indication: Arthralgia
  8. ACETAMINOPHEN [Suspect]
     Active Substance: ACETAMINOPHEN
     Indication: Bone pain
  9. PREGABALIN [Suspect]
     Active Substance: PREGABALIN
     Indication: Pain
     Dosage: 150 MILLIGRAM, TWO TIMES A DAY
     Route: 065
  10. PREGABALIN [Suspect]
     Active Substance: PREGABALIN
     Dosage: 300 MILLIGRAM, EVERY HOUR, EVERY  8 HOUR
     Route: 065
  11. TRAMADOL [Suspect]
     Active Substance: TRAMADOL
     Indication: Analgesic therapy
     Dosage: UNK
     Route: 065
  12. TRAMADOL [Suspect]
     Active Substance: TRAMADOL
     Indication: Pain
  13. TRAMADOL [Suspect]
     Active Substance: TRAMADOL
     Indication: Arthralgia
  14. TRAMADOL [Suspect]
     Active Substance: TRAMADOL
     Indication: Bone pain
  15. TRAMADOL [Suspect]
     Active Substance: TRAMADOL
     Indication: Mastocytosis
  16. FENTANYL [Suspect]
     Active Substance: FENTANYL
     Indication: Systemic mastocytosis
     Dosage: 200 MICROGRAM,
     Route: 002
  17. FENTANYL [Suspect]
     Active Substance: FENTANYL
     Indication: Arthralgia
  18. FENTANYL [Suspect]
     Active Substance: FENTANYL
     Indication: Pain
  19. FENTANYL [Suspect]
     Active Substance: FENTANYL
     Indication: Mastocytosis
     Dosage: UNK
     Route: 045
  20. FENTANYL [Suspect]
     Active Substance: FENTANYL
     Indication: Arthralgia
  21. IBUPROFEN [Suspect]
     Active Substance: IBUPROFEN
     Indication: Analgesic therapy
     Dosage: UNK
     Route: 065
  22. IBUPROFEN [Suspect]
     Active Substance: IBUPROFEN
     Indication: Pain
  23. IBUPROFEN [Suspect]
     Active Substance: IBUPROFEN
     Indication: Arthralgia
  24. IBUPROFEN [Suspect]
     Active Substance: IBUPROFEN
     Indication: Bone pain
  25. IBUPROFEN [Suspect]
     Active Substance: IBUPROFEN
     Indication: Mastocytosis
  26. KETOPROFEN [Suspect]
     Active Substance: KETOPROFEN
     Indication: Analgesic therapy
     Dosage: UNK
     Route: 065
  27. KETOPROFEN [Suspect]
     Active Substance: KETOPROFEN
     Indication: Arthralgia
  28. KETOPROFEN [Suspect]
     Active Substance: KETOPROFEN
     Indication: Arthralgia
  29. KETOPROFEN [Suspect]
     Active Substance: KETOPROFEN
     Indication: Bone pain
  30. KETOPROFEN [Suspect]
     Active Substance: KETOPROFEN
     Indication: Mastocytosis
  31. METAMIZOLE [Suspect]
     Active Substance: METAMIZOLE
     Indication: Pain
     Dosage: UNK
     Route: 065
  32. METAMIZOLE [Suspect]
     Active Substance: METAMIZOLE
     Indication: Analgesic therapy
  33. METAMIZOLE [Suspect]
     Active Substance: METAMIZOLE
     Indication: Arthralgia
  34. METAMIZOLE [Suspect]
     Active Substance: METAMIZOLE
     Indication: Bone pain
  35. METAMIZOLE [Suspect]
     Active Substance: METAMIZOLE
     Indication: Mastocytosis
  36. MORPHINE [Suspect]
     Active Substance: MORPHINE
     Indication: Pain
     Dosage: UNK
     Route: 065
  37. MORPHINE [Suspect]
     Active Substance: MORPHINE
     Indication: Analgesic therapy
  38. MORPHINE [Suspect]
     Active Substance: MORPHINE
     Indication: Arthralgia
  39. MORPHINE [Suspect]
     Active Substance: MORPHINE
     Indication: Bone pain
  40. MORPHINE [Suspect]
     Active Substance: MORPHINE
     Indication: Mastocytosis
  41. OXYCODONE [Suspect]
     Active Substance: OXYCODONE
     Indication: Pain
     Dosage: 80 MILLIGRAM, 3 TIMES A DAY
     Route: 048
  42. OXYCODONE [Suspect]
     Active Substance: OXYCODONE
     Indication: Arthralgia
     Dosage: 80 MILLIGRAM, FOUR TIMES/DAY
     Route: 048
  43. OXYCODONE [Suspect]
     Active Substance: OXYCODONE
     Dosage: 100 MILLIGRAM, FOUR TIMES/DAY
     Route: 065
  44. OXYCODONE [Suspect]
     Active Substance: OXYCODONE
     Dosage: UNK, TWO TIMES A DAY
     Route: 065
  45. OXYCODONE [Suspect]
     Active Substance: OXYCODONE
     Dosage: 100 MILLIGRAM, 3 TIMES A DAY
     Route: 065
  46. OXYCODONE [Suspect]
     Active Substance: OXYCODONE
     Dosage: 80 MILLIGRAM, EVERY HOUR
     Route: 065
  47. CLADRIBINE [Concomitant]
     Active Substance: CLADRIBINE
     Indication: Systemic mastocytosis
     Dosage: UNK
     Route: 065

REACTIONS (15)
  - Constipation [Recovered/Resolved]
  - Drug dependence [Recovered/Resolved]
  - Anaphylactic reaction [Recovered/Resolved]
  - Therapeutic response decreased [Unknown]
  - Anaphylactic shock [Recovered/Resolved]
  - Drug ineffective [Unknown]
  - Rhinitis allergic [Recovered/Resolved]
  - Gingival pain [Not Recovered/Not Resolved]
  - Toothache [Not Recovered/Not Resolved]
  - Therapeutic product effect incomplete [Unknown]
  - Hypersensitivity [Recovered/Resolved]
  - Drug intolerance [Unknown]
  - Teething [Not Recovered/Not Resolved]
  - Myalgia [Unknown]
  - Pain [Recovered/Resolved]
